FAERS Safety Report 20755116 (Version 3)
Quarter: 2022Q2

REPORT INFORMATION
  Report Type: Spontaneous
  Country: US (occurrence: US)
  Receive Date: 20220427
  Receipt Date: 20220519
  Transmission Date: 20220721
  Serious: No
  Sender: FDA-Public Use
  Company Number: US-ELI_LILLY_AND_COMPANY-US202204010897

PATIENT
  Age: 65 Year
  Sex: Female

DRUGS (5)
  1. TRULICITY [Suspect]
     Active Substance: DULAGLUTIDE
     Indication: Type 2 diabetes mellitus
     Dosage: 1.5 MG, UNKNOWN
     Route: 058
     Dates: start: 2016
  2. TRULICITY [Suspect]
     Active Substance: DULAGLUTIDE
     Indication: Type 2 diabetes mellitus
     Dosage: 3.0 MG, WEEKLY (1/W)
     Route: 058
     Dates: start: 2021
  3. METFORMIN [Concomitant]
     Active Substance: METFORMIN HYDROCHLORIDE
     Indication: Diabetes mellitus
     Dosage: UNK, BID
     Route: 065
  4. JARDIANCE [Concomitant]
     Active Substance: EMPAGLIFLOZIN
     Indication: Diabetes mellitus
     Dosage: UNK, DAILY
     Route: 065
  5. TRAMADOL [Concomitant]
     Active Substance: TRAMADOL
     Indication: Pain
     Dosage: UNK, UNKNOWN

REACTIONS (17)
  - Ocular discomfort [Recovering/Resolving]
  - Head discomfort [Recovering/Resolving]
  - Paraesthesia [Recovering/Resolving]
  - Headache [Unknown]
  - Injection site pain [Not Recovered/Not Resolved]
  - Myalgia [Not Recovered/Not Resolved]
  - Glycosylated haemoglobin increased [Unknown]
  - Chest pain [Unknown]
  - Memory impairment [Unknown]
  - Illness [Not Recovered/Not Resolved]
  - Influenza [Unknown]
  - Nausea [Not Recovered/Not Resolved]
  - Blood glucose decreased [Unknown]
  - Fatigue [Unknown]
  - Tremor [Recovering/Resolving]
  - Vomiting [Recovering/Resolving]
  - Extra dose administered [Recovering/Resolving]

NARRATIVE: CASE EVENT DATE: 20220420
